FAERS Safety Report 9098138 (Version 2)
Quarter: 2013Q1

REPORT INFORMATION
  Report Type: Report from Study
  Country: AU (occurrence: AU)
  Receive Date: 20130213
  Receipt Date: 20130304
  Transmission Date: 20140127
  Serious: Yes (Hospitalization)
  Sender: FDA-Public Use
  Company Number: PHHY2013AU013777

PATIENT
  Age: 42 Year
  Sex: Male

DRUGS (2)
  1. CLOZARIL [Suspect]
     Dosage: 650 MG, UNK
     Dates: start: 20080110
  2. CLOZARIL [Suspect]
     Dosage: UNK

REACTIONS (1)
  - Drug abuse [Recovered/Resolved]
